FAERS Safety Report 9221710 (Version 1)
Quarter: 2013Q1

REPORT INFORMATION
  Report Type: Spontaneous
  Country: US (occurrence: None)
  Receive Date: 20120831
  Receipt Date: 20120831
  Transmission Date: 20140127
  Serious: No
  Sender: FDA-Public Use
  Company Number: 163-22393-12061935

PATIENT
  Age: 75 Year
  Sex: Female
  Weight: 45.63 kg

DRUGS (3)
  1. ISTODAX [Suspect]
     Indication: MYCOSIS FUNGOIDES
     Dosage: 3 WEEKS ON AND 3 WEEKS OFF
     Dates: start: 201103, end: 201109
  2. AMLODIPINE (AMLODIPINE) [Concomitant]
  3. LORATIDINE [Concomitant]

REACTIONS (3)
  - Fatigue [None]
  - Decreased appetite [None]
  - Weight decreased [None]
